FAERS Safety Report 4810567-7 (Version None)
Quarter: 2005Q4

REPORT INFORMATION
  Report Type: 
  Country: None (occurrence: None)
  Receive Date: 20051024
  Receipt Date: 20051013
  Transmission Date: 20060501
  Serious: Yes (Hospitalization)
  Sender: FDA-Public Use
  Company Number: A-CH2005-09775

PATIENT
  Age: 46 Year
  Sex: Female

DRUGS (12)
  1. TRACLEER [Suspect]
     Indication: SCLERODERMA
     Dosage: SEE IMAGE
     Route: 048
     Dates: end: 20050701
  2. TRACLEER [Suspect]
     Indication: SCLERODERMA
     Dosage: SEE IMAGE
     Route: 048
     Dates: start: 20041101
  3. SANDOSTATIN [Concomitant]
  4. FONZYLANE (BUFLOMEDIL HYDROCHLORIDE) [Concomitant]
  5. ERYTHROMYCIN [Concomitant]
  6. PANTOPRAZOLE SODIUM [Concomitant]
  7. LEVOTHYROXINE SODIUM [Concomitant]
  8. POTASSIUM CHLORIDE [Concomitant]
  9. GAVISCON [Concomitant]
  10. MOVICOL (POTASSIUM CHLORIDE, SODIUM BICARBONATE, MACROGOL, SODIUM CHLO [Concomitant]
  11. DEBRIDAT ^JOUVEINAL^ (TRIMEBUTINE MALEATE) [Concomitant]
  12. CIPROFLOXACIN HCL [Concomitant]

REACTIONS (8)
  - ARTHRALGIA [None]
  - CUTANEOUS VASCULITIS [None]
  - DISEASE RECURRENCE [None]
  - OFF LABEL USE [None]
  - PYREXIA [None]
  - SKIN INFLAMMATION [None]
  - SUBCUTANEOUS NODULE [None]
  - VASCULAR PURPURA [None]
